FAERS Safety Report 7357758-1 (Version None)
Quarter: 2011Q1

REPORT INFORMATION
  Report Type: 
  Country: None (occurrence: None)
  Receive Date: 20110314
  Receipt Date: 20110314
  Transmission Date: 20110831
  Serious: Yes (Other)
  Sender: FDA-Public Use
  Company Number: None

PATIENT
  Sex: Female
  Weight: 110.5 kg

DRUGS (3)
  1. FORTAMET [Suspect]
  2. GLUMETZA [Suspect]
     Indication: TYPE 2 DIABETES MELLITUS
     Dosage: 500MG TWICE A DAY ORALLY
     Route: 048
     Dates: start: 20100712, end: 20100723
  3. METFORMIN HCL [Suspect]
     Indication: TYPE 2 DIABETES MELLITUS
     Dosage: 1000MG TWICE A DAY ORALLY
     Route: 048
     Dates: start: 20100619, end: 20100712

REACTIONS (4)
  - NAUSEA [None]
  - DIARRHOEA [None]
  - VOMITING [None]
  - BLOOD GLUCOSE INCREASED [None]
